FAERS Safety Report 6257295-1 (Version None)
Quarter: 2009Q3

REPORT INFORMATION
  Report Type: 
  Country: None (occurrence: None)
  Receive Date: 20090706
  Receipt Date: 20090626
  Transmission Date: 20100115
  Serious: Yes (Death)
  Sender: FDA-Public Use
  Company Number: US-PFIZER INC-2009201417

PATIENT
  Sex: Female

DRUGS (9)
  1. CAMPTOSAR [Suspect]
     Indication: COLON CANCER METASTATIC
     Dosage: 340 MG; EVERY TWO WEEKS
  2. NORVASC [Concomitant]
     Dosage: 10 MG, 1X/DAY
  3. REGLAN [Concomitant]
     Indication: NAUSEA
     Dosage: 10 MG, UNK
     Route: 048
  4. ZOFRAN [Concomitant]
     Dosage: 8 MG, UNK
     Route: 048
  5. OXYCODONE HYDROCHLORIDE W/PARACETAMOL [Concomitant]
     Indication: PAIN
     Route: 048
  6. MIRALAX [Concomitant]
     Indication: CONSTIPATION
     Dosage: 17 G, UNK
     Route: 048
  7. POTASSIUM CHLORIDE [Concomitant]
     Dosage: 20 MEQ, 2X/DAY
     Route: 048
  8. PREDNISONE [Concomitant]
     Dosage: 5 MG, UNK
     Route: 048
  9. DIOVAN HCT [Concomitant]
     Route: 048

REACTIONS (2)
  - COLON CANCER METASTATIC [None]
  - DISEASE PROGRESSION [None]
